FAERS Safety Report 6511572-5 (Version None)
Quarter: 2009Q4

REPORT INFORMATION
  Report Type: 
  Country: None (occurrence: None)
  Receive Date: 20091222
  Receipt Date: 20090423
  Transmission Date: 20100525
  Serious: No
  Sender: FDA-Public Use
  Company Number: US-ASTRAZENECA-2009UW10157

PATIENT
  Sex: Female
  Weight: 65.3 kg

DRUGS (8)
  1. CRESTOR [Suspect]
     Route: 048
  2. AGGRENOX [Concomitant]
     Indication: ANTICOAGULANT THERAPY
  3. POTASSIUM CHLORIDE [Concomitant]
     Indication: BLOOD POTASSIUM DECREASED
  4. CORVEDILOL [Concomitant]
     Indication: HYPERTENSION
  5. SYNTHROID [Concomitant]
     Indication: HYPOTHYROIDISM
  6. GABAPENTIN [Concomitant]
     Indication: PAIN
  7. VITAMINS AND SUPPLEMENTS [Concomitant]
  8. DIOVAN [Concomitant]
     Indication: BLOOD PRESSURE

REACTIONS (2)
  - BLOOD PRESSURE INCREASED [None]
  - WEIGHT INCREASED [None]
